FAERS Safety Report 5244562-3 (Version None)
Quarter: 2007Q1

REPORT INFORMATION
  Report Type: 
  Country: None (occurrence: None)
  Receive Date: 20061201
  Receipt Date: 20060817
  Transmission Date: 20070707
  Serious: No
  Sender: FDA-Public Use
  Company Number: 2006PV019654

PATIENT
  Age: 47 Year
  Sex: Female
  Weight: 99.7913 kg

DRUGS (4)
  1. BYETTA [Suspect]
     Indication: DIABETES MELLITUS NON-INSULIN-DEPENDENT
     Dosage: 5 MCG; BID; SC
     Route: 058
     Dates: start: 20060813
  2. METFORMIN [Concomitant]
  3. AMARYL [Concomitant]
  4. AVANDIA [Concomitant]

REACTIONS (4)
  - ABDOMINAL PAIN [None]
  - BLOOD GLUCOSE INCREASED [None]
  - DECREASED APPETITE [None]
  - NAUSEA [None]
